FAERS Safety Report 23184063 (Version 1)
Quarter: 2023Q4

REPORT INFORMATION
  Report Type: Spontaneous
  Country: JP (occurrence: JP)
  Receive Date: 20231115
  Receipt Date: 20231115
  Transmission Date: 20240110
  Serious: Yes (Death, Other)
  Sender: FDA-Public Use
  Company Number: JP-BAYER-2023A159469

PATIENT
  Age: 82 Year
  Sex: Male

DRUGS (5)
  1. XARELTO [Suspect]
     Active Substance: RIVAROXABAN
     Indication: Atrial fibrillation
     Route: 048
  2. EVIPROSTAT [SERENOA REPENS] [Concomitant]
  3. BENIDIPINE HYDROCHLORIDE [Concomitant]
     Active Substance: BENIDIPINE HYDROCHLORIDE
  4. CANDESARTAN [Concomitant]
     Active Substance: CANDESARTAN
  5. ALLOPURINOL [Concomitant]
     Active Substance: ALLOPURINOL

REACTIONS (11)
  - Postrenal failure [Fatal]
  - Blood creatinine increased [Unknown]
  - Metastases to lung [Fatal]
  - Nephrolithiasis [Unknown]
  - Ureterolithiasis [Unknown]
  - Pyelonephritis [Unknown]
  - Malignant neoplasm of renal pelvis [Unknown]
  - Metastases to lymph nodes [Unknown]
  - Metastases to liver [Unknown]
  - Metastases to bone [Unknown]
  - Eastern Cooperative Oncology Group performance status worsened [Unknown]
